FAERS Safety Report 13609215 (Version 2)
Quarter: 2017Q2

REPORT INFORMATION
  Report Type: Spontaneous
  Country: US (occurrence: US)
  Receive Date: 20170602
  Receipt Date: 20170622
  Transmission Date: 20170830
  Serious: Yes (Other)
  Sender: FDA-Public Use
  Company Number: US-BRISTOL-MYERS SQUIBB COMPANY-BMS-2017-047544

PATIENT
  Sex: Male

DRUGS (2)
  1. YERVOY [Suspect]
     Active Substance: IPILIMUMAB
     Indication: PRODUCT USED FOR UNKNOWN INDICATION
     Route: 065
  2. IMLYGIC [Suspect]
     Active Substance: TALIMOGENE LAHERPAREPVEC
     Indication: PRODUCT USED FOR UNKNOWN INDICATION
     Route: 065

REACTIONS (6)
  - Autoimmune dermatitis [Not Recovered/Not Resolved]
  - Autoimmune nephritis [Not Recovered/Not Resolved]
  - Off label use [Unknown]
  - Autoimmune colitis [Not Recovered/Not Resolved]
  - Autoimmune hypothyroidism [Not Recovered/Not Resolved]
  - Lymphocytic hypophysitis [Not Recovered/Not Resolved]
